FAERS Safety Report 5155151-3 (Version None)
Quarter: 2006Q4

REPORT INFORMATION
  Report Type: 
  Country: None (occurrence: None)
  Receive Date: 20061121
  Receipt Date: 20060919
  Transmission Date: 20070319
  Serious: Yes (Other)
  Sender: FDA-Public Use
  Company Number: 2006UW18327

PATIENT
  Age: 44 Year
  Sex: Female
  Weight: 56.7 kg

DRUGS (7)
  1. SEROQUEL [Suspect]
     Indication: BIPOLAR DISORDER
     Route: 048
     Dates: start: 20050301, end: 20060801
  2. LEXAPRO [Suspect]
     Indication: DEPRESSION
     Route: 048
     Dates: start: 20050301, end: 20050501
  3. LEXAPRO [Suspect]
     Route: 048
     Dates: start: 20050501, end: 20060801
  4. ZOLOFT [Suspect]
     Dates: start: 20050301, end: 20060801
  5. STRATTERA [Suspect]
  6. ATENOLOL [Concomitant]
  7. INDERAL [Concomitant]

REACTIONS (8)
  - ABNORMAL DREAMS [None]
  - ALCOHOL USE [None]
  - ANXIETY [None]
  - BIPOLAR DISORDER [None]
  - HALLUCINATION [None]
  - INSOMNIA [None]
  - PANIC ATTACK [None]
  - SUICIDE ATTEMPT [None]
